FAERS Safety Report 19860152 (Version 1)
Quarter: 2021Q3

REPORT INFORMATION
  Report Type: Spontaneous
  Country: DE (occurrence: DE)
  Receive Date: 20210921
  Receipt Date: 20210921
  Transmission Date: 20211014
  Serious: Yes (Hospitalization)
  Sender: FDA-Public Use
  Company Number: DE-009507513-2109DEU003368

PATIENT
  Age: 32 Year
  Sex: Male
  Weight: 79.3 kg

DRUGS (3)
  1. ACETYLSALICYLIC ACID [Concomitant]
     Active Substance: ASPIRIN
     Dosage: UNK, 100 MG, 1?0?0?0, TABLETS
     Route: 048
  2. PIFELTRO [Suspect]
     Active Substance: DORAVIRINE
     Dosage: UNK, 100 MG, 1?0?0?0, TABLETS
     Route: 048
  3. BICTEGRAVIR;EMTRICITABINE;TENOFOVIR ALAFENAMIDE [Suspect]
     Active Substance: BICTEGRAVIR\EMTRICITABINE\TENOFOVIR ALAFENAMIDE
     Dosage: UNK, 50/200/25 MGA, 1?0?0?0, TABLETS
     Route: 048

REACTIONS (4)
  - Suicidal ideation [Unknown]
  - Depressed mood [Unknown]
  - Stress at work [Unknown]
  - Family stress [Unknown]
